FAERS Safety Report 11680303 (Version 2)
Quarter: 2015Q4

REPORT INFORMATION
  Report Type: Spontaneous
  Country: US (occurrence: US)
  Receive Date: 20151027
  Receipt Date: 20151104
  Transmission Date: 20160304
  Serious: No
  Sender: FDA-Public Use
  Company Number: US-ELI_LILLY_AND_COMPANY-US201011000692

PATIENT
  Age: 72 Year
  Sex: Female

DRUGS (3)
  1. FORTEO [Suspect]
     Active Substance: TERIPARATIDE
     Dosage: 20 UG, DAILY (1/D)
     Route: 058
     Dates: end: 20101227
  2. FORTEO [Suspect]
     Active Substance: TERIPARATIDE
     Dosage: 20 UG, DAILY (1/D)
     Route: 058
  3. FORTEO [Suspect]
     Active Substance: TERIPARATIDE
     Indication: OSTEOPOROSIS
     Dosage: 20 UG, DAILY (1/D)
     Route: 058
     Dates: start: 201009

REACTIONS (18)
  - Amnesia [Recovering/Resolving]
  - Adverse drug reaction [Unknown]
  - Constipation [Recovering/Resolving]
  - Dementia Alzheimer^s type [Unknown]
  - Malaise [Unknown]
  - Myalgia [Recovered/Resolved]
  - Muscle spasms [Recovering/Resolving]
  - Feeling abnormal [Recovering/Resolving]
  - Intentional product misuse [Unknown]
  - Drug prescribing error [Unknown]
  - Tremor [Recovering/Resolving]
  - Stress [Recovering/Resolving]
  - Fatigue [Recovered/Resolved]
  - Memory impairment [Not Recovered/Not Resolved]
  - Thinking abnormal [Not Recovered/Not Resolved]
  - Injection site bruising [Recovering/Resolving]
  - Bone disorder [Not Recovered/Not Resolved]
  - Fall [Recovered/Resolved]

NARRATIVE: CASE EVENT DATE: 20101019
